FAERS Safety Report 9068675 (Version 1)
Quarter: 2013Q1

REPORT INFORMATION
  Report Type: Spontaneous
  Country: US (occurrence: US)
  Receive Date: 20130128
  Receipt Date: 20130128
  Transmission Date: 20140127
  Serious: No
  Sender: FDA-Public Use
  Company Number: US-B.I. PHARMACEUTICALS,INC./RIDGEFIELD-2013-BI-01877BP

PATIENT
  Age: 60 Year
  Sex: Female
  Weight: 70 kg

DRUGS (4)
  1. ZANTAC COOL MINT (TABLETS) [Suspect]
     Indication: DYSPEPSIA
     Dosage: 300 MG
     Route: 048
     Dates: start: 20130108
  2. ZYRTEC [Concomitant]
     Indication: ANTIALLERGIC THERAPY
     Dosage: 10 MG
     Route: 048
     Dates: start: 201301
  3. NORTREL [Concomitant]
     Indication: HORMONE THERAPY
     Route: 048
     Dates: start: 2003
  4. LISINOPRIL [Concomitant]
     Indication: HYPERTENSION
     Dosage: 5 MG
     Route: 048
     Dates: start: 2003

REACTIONS (1)
  - Faeces discoloured [Not Recovered/Not Resolved]
